FAERS Safety Report 13678526 (Version 1)
Quarter: 2017Q2

REPORT INFORMATION
  Report Type: Spontaneous
  Country: US (occurrence: US)
  Receive Date: 20170622
  Receipt Date: 20170622
  Transmission Date: 20170830
  Serious: Yes (Other)
  Sender: FDA-Public Use
  Company Number: US-PFIZER INC-2017265310

PATIENT
  Sex: Female

DRUGS (1)
  1. XELJANZ XR [Suspect]
     Active Substance: TOFACITINIB CITRATE
     Dosage: 11 MG, DAILY
     Dates: start: 20170328

REACTIONS (8)
  - Joint effusion [Unknown]
  - Musculoskeletal stiffness [Unknown]
  - Arthralgia [Unknown]
  - Pain in extremity [Unknown]
  - Joint swelling [Unknown]
  - Thrombotic thrombocytopenic purpura [Unknown]
  - Drug effect incomplete [Unknown]
  - Musculoskeletal pain [Unknown]
